FAERS Safety Report 24174834 (Version 1)
Quarter: 2024Q3

REPORT INFORMATION
  Report Type: Spontaneous
  Country: CA (occurrence: CA)
  Receive Date: 20240805
  Receipt Date: 20240805
  Transmission Date: 20241016
  Serious: Yes (Death, Other)
  Sender: GENMAB
  Company Number: CA-GENMAB-2024-02823

PATIENT
  Sex: Female

DRUGS (1)
  1. EPKINLY [Suspect]
     Active Substance: EPCORITAMAB-BYSP
     Indication: Diffuse large B-cell lymphoma
     Dosage: 48 DOSAGE FORM
     Route: 058

REACTIONS (5)
  - Lymphoma [Fatal]
  - Neurotoxicity [Unknown]
  - Neurological symptom [Unknown]
  - Pyrexia [Unknown]
  - Cytokine release syndrome [Unknown]
